FAERS Safety Report 9248618 (Version 2)
Quarter: 2013Q2

REPORT INFORMATION
  Report Type: Report from Study
  Country: PH (occurrence: PH)
  Receive Date: 20130423
  Receipt Date: 20130424
  Transmission Date: 20140414
  Serious: Yes (Hospitalization)
  Sender: FDA-Public Use
  Company Number: PH-ROCHE-1213125

PATIENT
  Age: 26 Year
  Sex: Female
  Weight: 68.2 kg

DRUGS (7)
  1. TRASTUZUMAB [Suspect]
     Indication: BREAST CANCER
     Dosage: LOADING DOSE
     Route: 042
     Dates: start: 20121227
  2. TRASTUZUMAB [Suspect]
     Dosage: DATE OF LAST DOSE PRIOR TO SAE: 21/MAR/2013, MAINTAINANCE DOSE
     Route: 042
     Dates: end: 20130411
  3. TRASTUZUMAB [Suspect]
     Dosage: CYCLE 6
     Route: 042
     Dates: start: 20130422
  4. FERROUS SULPHATE [Concomitant]
     Route: 065
     Dates: start: 20121026, end: 20130228
  5. PARACETAMOL [Concomitant]
     Route: 065
     Dates: start: 20121227
  6. PERTUZUMAB [Suspect]
     Indication: BREAST CANCER
     Dosage: LAODING DOSE
     Route: 042
     Dates: start: 20121227
  7. PERTUZUMAB [Suspect]
     Dosage: DATE OF LAST DOSE PRIOR TO SAE: 21/MAR/2013, MAINTAINANCE DOSE
     Route: 042
     Dates: end: 20130411

REACTIONS (1)
  - Pneumonia [Recovered/Resolved]
